FAERS Safety Report 9718817 (Version 1)
Quarter: 2013Q4

REPORT INFORMATION
  Report Type: Report from Study
  Country: AU (occurrence: AU)
  Receive Date: 20131127
  Receipt Date: 20131127
  Transmission Date: 20140711
  Serious: Yes (Hospitalization)
  Sender: FDA-Public Use
  Company Number: AU-GLAXOSMITHKLINE-B0887521D

PATIENT
  Age: 74 Year
  Sex: Male

DRUGS (2)
  1. AZACITIDINE [Suspect]
     Indication: MYELOID LEUKAEMIA
     Dosage: 75MGM2 CYCLIC
     Route: 058
     Dates: start: 20130422
  2. ELTROMBOPAG [Suspect]
     Indication: MYELOID LEUKAEMIA
     Route: 048
     Dates: start: 20130410

REACTIONS (1)
  - Febrile neutropenia [Not Recovered/Not Resolved]
